FAERS Safety Report 23571750 (Version 1)
Quarter: 2024Q1

REPORT INFORMATION
  Report Type: Spontaneous
  Country: US (occurrence: None)
  Receive Date: 20240227
  Receipt Date: 20240227
  Transmission Date: 20240410
  Serious: No
  Sender: FDA-Public Use
  Company Number: None

PATIENT
  Sex: Female

DRUGS (2)
  1. ZEJULA [Suspect]
     Active Substance: NIRAPARIB
     Indication: Embolism
     Dosage: 100MG ONCE DAILY BY MOUTH?
     Route: 048
     Dates: start: 202312
  2. ZEJULA [Suspect]
     Active Substance: NIRAPARIB
     Indication: Thrombosis

REACTIONS (1)
  - Myocardial infarction [None]
